FAERS Safety Report 8615966-3 (Version None)
Quarter: 2012Q3

REPORT INFORMATION
  Report Type: 
  Country: None (occurrence: None)
  Receive Date: 20120823
  Receipt Date: 20120820
  Transmission Date: 20120928
  Serious: No
  Sender: FDA-Public Use
  Company Number: US-PFIZER INC-2012204335

PATIENT

DRUGS (1)
  1. EFFEXOR [Suspect]
     Dosage: 25 MG, 1X/DAY

REACTIONS (3)
  - HYPERTENSION [None]
  - PHOTOSENSITIVITY REACTION [None]
  - INTRAOCULAR PRESSURE INCREASED [None]
